FAERS Safety Report 8365070-7 (Version None)
Quarter: 2012Q2

REPORT INFORMATION
  Report Type: 
  Country: None (occurrence: None)
  Receive Date: 20120516
  Receipt Date: 20120508
  Transmission Date: 20120825
  Serious: Yes (Other)
  Sender: FDA-Public Use
  Company Number: JP-VERTEX PHARMACEUTICALS INC.-AE-2012-005213

PATIENT
  Age: 51 Year
  Sex: Male

DRUGS (27)
  1. REBETOL [Concomitant]
     Route: 048
     Dates: start: 20120315
  2. URSO 250 [Concomitant]
     Indication: HEPATITIS C
     Route: 048
     Dates: start: 20101005, end: 20120307
  3. YOUCOBAL [Concomitant]
     Route: 048
     Dates: end: 20120208
  4. CANDESARTAN CILEXETIL [Concomitant]
     Route: 048
     Dates: end: 20120315
  5. OMEPRAZOLE [Concomitant]
     Route: 048
     Dates: end: 20120208
  6. HYALEIN [Concomitant]
     Route: 031
     Dates: start: 20120412
  7. REBETOL [Concomitant]
     Route: 048
     Dates: start: 20120223, end: 20120314
  8. PEG-INTRON [Concomitant]
     Route: 058
     Dates: start: 20120413
  9. ROHYPNOL [Concomitant]
     Route: 048
  10. DEPAS [Concomitant]
     Route: 048
  11. POLARAMINE [Concomitant]
     Dates: start: 20120308
  12. RABEPRAZOLE SODIUM [Concomitant]
     Route: 048
     Dates: start: 20120209
  13. BIO-THREE (CLOSTRIDIUM BUTYRICUM COMBINED DRUG) [Concomitant]
     Route: 048
     Dates: start: 20120124, end: 20120208
  14. LIVOSTIN [Concomitant]
     Route: 031
     Dates: start: 20120412
  15. TELAVIC (TELAPREVIR) [Suspect]
     Indication: HEPATITIS C
     Route: 048
     Dates: start: 20120124, end: 20120328
  16. ALLOPURINOL [Concomitant]
     Route: 048
     Dates: end: 20120308
  17. REBETOL [Concomitant]
     Indication: HEPATITIS C
     Route: 048
     Dates: start: 20120124, end: 20120215
  18. REBETOL [Concomitant]
     Route: 048
     Dates: start: 20120216, end: 20120222
  19. PEG-INTRON [Concomitant]
     Indication: HEPATITIS C
     Route: 058
     Dates: start: 20120124, end: 20120412
  20. ADENOSINE [Concomitant]
     Route: 048
     Dates: end: 20120208
  21. FLOMOX [Concomitant]
     Route: 048
     Dates: start: 20120404, end: 20120408
  22. LENDORMIN [Concomitant]
     Route: 048
     Dates: start: 20120127
  23. TELAVIC (TELAPREVIR) [Suspect]
     Route: 048
     Dates: start: 20120329, end: 20120405
  24. HALCION [Concomitant]
     Route: 048
     Dates: end: 20120130
  25. CALBLOCK [Concomitant]
     Route: 048
     Dates: end: 20120315
  26. ALLOPURINOL [Concomitant]
     Route: 048
     Dates: start: 20120330
  27. NEOPHAGEN [Concomitant]
     Route: 048
     Dates: end: 20120207

REACTIONS (2)
  - RASH [None]
  - RETINAL HAEMORRHAGE [None]
